FAERS Safety Report 20507355 (Version 2)
Quarter: 2022Q1

REPORT INFORMATION
  Report Type: Report from Study
  Country: BR (occurrence: BR)
  Receive Date: 20220223
  Receipt Date: 20220301
  Transmission Date: 20220423
  Serious: Yes (Life-Threatening, Other)
  Sender: FDA-Public Use
  Company Number: BR-NOVARTISPH-NVSC2022BR039301

PATIENT
  Age: 60 Year
  Sex: Female

DRUGS (2)
  1. COSENTYX [Suspect]
     Active Substance: SECUKINUMAB
     Indication: Psoriasis
     Dosage: 1 DOSAGE FORM, QMO
     Route: 058
     Dates: start: 202201
  2. COSENTYX [Suspect]
     Active Substance: SECUKINUMAB
     Indication: Pustular psoriasis
     Dosage: 1 DOSAGE FORM, QMO
     Route: 058
     Dates: start: 20220217

REACTIONS (20)
  - Near death experience [Recovered/Resolved]
  - Haemorrhage [Unknown]
  - Varicose vein [Unknown]
  - Burning sensation [Recovered/Resolved]
  - Skin erosion [Unknown]
  - Tendon rupture [Unknown]
  - Skin discolouration [Unknown]
  - Wound [Recovered/Resolved]
  - Malaise [Recovered/Resolved]
  - Liver disorder [Recovered/Resolved]
  - Urinary tract infection [Recovered/Resolved]
  - Bladder discomfort [Unknown]
  - Hepatic steatosis [Unknown]
  - Abdominal pain [Recovered/Resolved]
  - Flatulence [Recovered/Resolved]
  - Swelling [Recovered/Resolved]
  - Nervousness [Recovered/Resolved]
  - Psoriasis [Recovered/Resolved]
  - Psoriasis [Unknown]
  - Injection site haemorrhage [Recovered/Resolved]

NARRATIVE: CASE EVENT DATE: 20220203
